FAERS Safety Report 9166236 (Version 3)
Quarter: 2013Q3

REPORT INFORMATION
  Report Type: Report from Study
  Country: US (occurrence: US)
  Receive Date: 20130315
  Receipt Date: 20130726
  Transmission Date: 20140515
  Serious: Yes (Hospitalization, Other)
  Sender: FDA-Public Use
  Company Number: US-PFIZER INC-2013083220

PATIENT
  Age: 36 Year
  Sex: Male
  Weight: 107 kg

DRUGS (4)
  1. CHANTIX [Suspect]
     Dosage: UNK
     Dates: start: 20121004
  2. REBIF [Suspect]
     Indication: MULTIPLE SCLEROSIS
     Dosage: 44 UG, 3 TIMES/WEEK
     Route: 058
     Dates: start: 20120319
  3. BUSPAR [Concomitant]
     Dosage: UNK
  4. IBUPROFEN [Concomitant]
     Indication: PREMEDICATION
     Dosage: UNK

REACTIONS (7)
  - Suicidal ideation [Recovered/Resolved]
  - Bipolar I disorder [Recovered/Resolved]
  - Optic neuritis [Recovered/Resolved]
  - Upper-airway cough syndrome [Not Recovered/Not Resolved]
  - Balance disorder [Not Recovered/Not Resolved]
  - Pain [Not Recovered/Not Resolved]
  - Injection site induration [Not Recovered/Not Resolved]
